FAERS Safety Report 22130462 (Version 1)
Quarter: 2023Q1

REPORT INFORMATION
  Report Type: Spontaneous
  Country: PL (occurrence: PL)
  Receive Date: 20230323
  Receipt Date: 20230323
  Transmission Date: 20230417
  Serious: Yes (Other)
  Sender: FDA-Public Use
  Company Number: PL-JNJFOC-20220625941

PATIENT
  Age: 38 Year
  Sex: Female

DRUGS (9)
  1. ZOLEDRONIC ACID [Suspect]
     Active Substance: ZOLEDRONIC ACID
     Dosage: 4 MG
  2. CALCIUM [Suspect]
     Active Substance: CALCIUM
  3. DENOSUMAB [Suspect]
     Active Substance: DENOSUMAB
     Dosage: FREQ:28 D;
     Dates: start: 202104
  4. VITAMIN D3 [Suspect]
     Active Substance: CHOLECALCIFEROL
  5. KISQALI [Suspect]
     Active Substance: RIBOCICLIB
     Indication: Breast cancer
     Dosage: 600 MG, QD
  6. KISQALI [Suspect]
     Active Substance: RIBOCICLIB
     Dosage: 400 MG, QD
  7. GONADORELIN DIACETATE TETRAHYDRATE [Suspect]
     Active Substance: GONADORELIN DIACETATE TETRAHYDRATE
     Dosage: 3.6 MG EVERY 28 DAYS
     Dates: start: 202112
  8. ESTRADIOL [Suspect]
     Active Substance: ESTRADIOL
     Dates: start: 20210305
  9. LETROZOLE [Suspect]
     Active Substance: LETROZOLE
     Dosage: 2.5 MG, 1X/DAY
     Dates: start: 202112

REACTIONS (4)
  - Neutropenia [Recovered/Resolved]
  - Alanine aminotransferase increased [Recovering/Resolving]
  - Hepatic steatosis [Unknown]
  - Aspartate aminotransferase increased [Recovering/Resolving]

NARRATIVE: CASE EVENT DATE: 20211201
